FAERS Safety Report 6356437-7 (Version None)
Quarter: 2009Q3

REPORT INFORMATION
  Report Type: 
  Country: None (occurrence: None)
  Receive Date: 20090915
  Receipt Date: 20090909
  Transmission Date: 20100115
  Serious: Yes (Death)
  Sender: FDA-Public Use
  Company Number: A0795908A

PATIENT
  Age: 85 Year
  Sex: Male

DRUGS (2)
  1. COREG CR [Suspect]
     Indication: PAIN
     Dosage: 10MG PER DAY
     Route: 048
     Dates: start: 20081201
  2. PLASMAPHERESIS [Suspect]
     Indication: SKIN CANCER
     Dates: start: 20090325, end: 20090326

REACTIONS (4)
  - DEATH [None]
  - DRUG INEFFECTIVE [None]
  - FATIGUE [None]
  - PAIN IN EXTREMITY [None]
